FAERS Safety Report 6901454-9 (Version None)
Quarter: 2010Q3

REPORT INFORMATION
  Report Type: 
  Country: None (occurrence: None)
  Receive Date: 20100803
  Receipt Date: 20080201
  Transmission Date: 20110219
  Serious: No
  Sender: FDA-Public Use
  Company Number: US-PFIZER INC-2008011367

PATIENT
  Sex: Male
  Weight: 108.9 kg

DRUGS (8)
  1. LYRICA [Suspect]
     Indication: NEURALGIA
     Route: 048
     Dates: start: 20071201
  2. VALSARTAN [Concomitant]
  3. HYDROCHLOROTHIAZIDE [Concomitant]
  4. TOPROL-XL [Concomitant]
  5. HUMALOG [Concomitant]
  6. TRAMADOL HYDROCHLORIDE [Concomitant]
  7. ALL OTHER THERAPEUTIC PRODUCTS [Concomitant]
  8. INSULIN DETEMIR [Concomitant]

REACTIONS (2)
  - EAR CONGESTION [None]
  - SINUS CONGESTION [None]
